FAERS Safety Report 23436748 (Version 2)
Quarter: 2024Q1

REPORT INFORMATION
  Report Type: Spontaneous
  Country: DE (occurrence: DE)
  Receive Date: 20240124
  Receipt Date: 20240212
  Transmission Date: 20240410
  Serious: Yes (Life-Threatening, Hospitalization, Other)
  Sender: FDA-Public Use
  Company Number: DE-BoehringerIngelheim-2024-BI-004099

PATIENT
  Age: 80 Year
  Sex: Female
  Weight: 50 kg

DRUGS (30)
  1. JARDIANCE [Suspect]
     Active Substance: EMPAGLIFLOZIN
     Indication: Type 2 diabetes mellitus
  2. Amineurin 10 [Concomitant]
     Indication: Product used for unknown indication
  3. ASPIRIN [Concomitant]
     Active Substance: ASPIRIN
     Indication: Product used for unknown indication
     Route: 048
  4. Esomeprazol 20 mg [Concomitant]
     Indication: Product used for unknown indication
  5. Fentanyl TTS (Pflaster) 50 mcg/hour [Concomitant]
     Indication: Product used for unknown indication
     Dosage: NEXT CHANGE ON 26-JAN-2024 AT 8.00 A.M.
  6. JANUVIA [Concomitant]
     Active Substance: SITAGLIPTIN PHOSPHATE
     Indication: Product used for unknown indication
  7. Maaloxan 25 [Concomitant]
     Indication: Product used for unknown indication
  8. METFORMIN [Concomitant]
     Active Substance: METFORMIN HYDROCHLORIDE
     Indication: Product used for unknown indication
  9. Mictonorm Uno 45 mg [Concomitant]
     Indication: Product used for unknown indication
  10. Novopulmon 200 Inh+Pat [Concomitant]
     Indication: Product used for unknown indication
  11. PROPRANOLOL [Concomitant]
     Active Substance: PROPRANOLOL HYDROCHLORIDE
     Indication: Product used for unknown indication
  12. Salbutamol  200 [Concomitant]
     Indication: Product used for unknown indication
  13. SIMVASTATIN [Concomitant]
     Active Substance: SIMVASTATIN
     Indication: Product used for unknown indication
  14. SIMVASTATIN [Concomitant]
     Active Substance: SIMVASTATIN
     Dosage: 8.00 P.M.
     Route: 048
  15. Toujeo Insulin [Concomitant]
     Indication: Product used for unknown indication
  16. Valsimia 5/160 [Concomitant]
     Indication: Product used for unknown indication
  17. Sitagliptinphosphat [Concomitant]
     Indication: Product used for unknown indication
     Route: 048
  18. Amitriptylin-HCI [Concomitant]
     Indication: Product used for unknown indication
     Route: 048
  19. Budesonid DA [Concomitant]
     Indication: Product used for unknown indication
     Dosage: 1 PUFF AT?8.00 A.M.?8.00 P.M.
     Route: 055
  20. Salbutamolsulfat (Vernebler) [Concomitant]
     Indication: Product used for unknown indication
     Dosage: 1 AMPOULE AT?8.00 A.M.?2.00 P.M.?8.00 P.M.?2.00 A.M.
     Route: 055
  21. Enoxaparin-Natrium [Concomitant]
     Indication: Product used for unknown indication
     Route: 058
  22. VALSARTAN [Concomitant]
     Active Substance: VALSARTAN
     Indication: Product used for unknown indication
     Route: 048
  23. ZOPICLONE [Concomitant]
     Active Substance: ZOPICLONE
     Indication: Product used for unknown indication
     Route: 048
  24. Metamizol-Na [Concomitant]
     Indication: Product used for unknown indication
     Route: 042
  25. Pantoprazol-Na [Concomitant]
     Indication: Product used for unknown indication
     Route: 042
  26. Erythromycinlactobionat (Prokinetikum) [Concomitant]
     Indication: Product used for unknown indication
     Route: 042
  27. Piritramid [Concomitant]
     Indication: Product used for unknown indication
     Route: 058
  28. Cefuroxim-Na [Concomitant]
     Indication: Product used for unknown indication
     Route: 042
     Dates: start: 20240120, end: 20240127
  29. METRONIDAZOLE [Concomitant]
     Active Substance: METRONIDAZOLE
     Indication: Product used for unknown indication
     Route: 042
     Dates: start: 20240120, end: 20240127
  30. Aminomix [Concomitant]
     Indication: Product used for unknown indication
     Dosage: 42 ML/H
     Route: 042

REACTIONS (9)
  - Fall [Unknown]
  - Pelvic fracture [Unknown]
  - Metabolic acidosis [Unknown]
  - Acute myocardial infarction [Unknown]
  - Ketoacidosis [Unknown]
  - Vomiting [Unknown]
  - Intestinal atony [Unknown]
  - Hypophosphataemia [Unknown]
  - Subileus [Unknown]

NARRATIVE: CASE EVENT DATE: 20240115
